FAERS Safety Report 7325663-2 (Version None)
Quarter: 2011Q1

REPORT INFORMATION
  Report Type: 
  Country: None (occurrence: None)
  Receive Date: 20110302
  Receipt Date: 20110224
  Transmission Date: 20110831
  Serious: Yes (Hospitalization, Disabling, Other)
  Sender: FDA-Public Use
  Company Number: US-PFIZER INC-2010170488

PATIENT
  Sex: Female

DRUGS (19)
  1. LEVAQUIN [Concomitant]
     Indication: ANTIBIOTIC THERAPY
     Dosage: UNK
     Dates: start: 20040101, end: 20090101
  2. CELEBREX [Concomitant]
     Indication: ARTHRITIS
     Dosage: UNK
     Dates: start: 20040101, end: 20100101
  3. IBUPROFEN [Concomitant]
     Indication: ANALGESIC THERAPY
     Dosage: UNK
     Dates: start: 20050101, end: 20090101
  4. TRAMADOL [Concomitant]
     Indication: ANALGESIC THERAPY
     Dosage: UNK
     Dates: start: 20060101, end: 20080101
  5. AZITHROMYCIN [Concomitant]
     Indication: ANTIBIOTIC THERAPY
     Dosage: UNK
     Dates: start: 20060101, end: 20090101
  6. DOXYCYCLINE HYCLATE [Concomitant]
     Indication: ANTIBIOTIC THERAPY
     Dosage: UNK
     Dates: start: 20060101, end: 20100101
  7. VERAPAMIL [Concomitant]
     Indication: HEART RATE IRREGULAR
     Dosage: UNK
     Dates: start: 20040101, end: 20080101
  8. NAPROXEN [Concomitant]
     Indication: ARTHRITIS
     Dosage: UNK
     Dates: start: 20040101
  9. TRICOR [Concomitant]
     Indication: BLOOD CHOLESTEROL
     Dosage: UNK
     Dates: start: 20060101, end: 20090101
  10. FLUTICASONE [Concomitant]
     Indication: HYPERSENSITIVITY
     Dosage: UNK
     Dates: start: 20070101
  11. ACETAMINOPHEN [Concomitant]
     Indication: ANALGESIC THERAPY
     Dosage: UNK
     Dates: start: 20040101, end: 20090101
  12. LITHIUM CARBONATE [Concomitant]
     Indication: PSYCHOTIC DISORDER
     Dosage: UNK
     Dates: start: 20070101, end: 20080101
  13. OXYCODONE [Concomitant]
     Indication: ANALGESIC THERAPY
     Dosage: UNK
     Dates: start: 20040101, end: 20100101
  14. ALBUTEROL [Concomitant]
     Indication: EMPHYSEMA
     Dosage: UNK
     Dates: start: 20060101, end: 20100101
  15. PERCOCET [Concomitant]
     Indication: ANALGESIC THERAPY
     Dosage: UNK
     Dates: start: 20010101
  16. CYCLOBENZAPRINE [Concomitant]
     Indication: MUSCLE RELAXANT THERAPY
     Dosage: UNK
     Dates: start: 20060101, end: 20100101
  17. PROTONIX [Concomitant]
     Indication: GASTROOESOPHAGEAL REFLUX DISEASE
     Dosage: UNK
     Dates: start: 20020101
  18. CHANTIX [Suspect]
     Indication: SMOKING CESSATION THERAPY
     Dosage: STARTER PACK AND CONTINUING PACK
     Dates: start: 20070901, end: 20080111
  19. PIROXICAM [Concomitant]
     Indication: ARTHRITIS
     Dosage: UNK
     Dates: start: 20040101, end: 20100101

REACTIONS (7)
  - SUICIDE ATTEMPT [None]
  - AGGRESSION [None]
  - LOSS OF CONSCIOUSNESS [None]
  - BIPOLAR DISORDER [None]
  - DEPRESSION [None]
  - ANXIETY [None]
  - ABNORMAL DREAMS [None]
